FAERS Safety Report 5843202-X (Version None)
Quarter: 2008Q3

REPORT INFORMATION
  Report Type: 
  Country: None (occurrence: None)
  Receive Date: 20080813
  Receipt Date: 20080805
  Transmission Date: 20090109
  Serious: Yes (Hospitalization, Other)
  Sender: FDA-Public Use
  Company Number: PHBS2008SG05283

PATIENT
  Age: 33 Year
  Sex: Female

DRUGS (4)
  1. OXYTOCIN [Suspect]
     Route: 042
  2. DURATOCIN [Concomitant]
     Route: 042
  3. ERGOMETRINE [Concomitant]
     Route: 042
  4. PLASMA [Concomitant]

REACTIONS (5)
  - HAEMOGLOBIN DECREASED [None]
  - PYREXIA [None]
  - RETAINED PLACENTA OR MEMBRANES [None]
  - UTERINE MASS [None]
  - VAGINAL HAEMORRHAGE [None]
